FAERS Safety Report 24000769 (Version 1)
Quarter: 2024Q2

REPORT INFORMATION
  Report Type: Spontaneous
  Country: US (occurrence: US)
  Receive Date: 20240621
  Receipt Date: 20240621
  Transmission Date: 20240715
  Serious: Yes (Hospitalization)
  Sender: FDA-Public Use
  Company Number: US-PFIZER INC-202400193905

PATIENT
  Sex: Male

DRUGS (11)
  1. LEVOFLOXACIN [Suspect]
     Active Substance: LEVOFLOXACIN
     Indication: Congenital tuberculosis
     Dosage: 15 MG/KG, DAILY
  2. ISONIAZID [Suspect]
     Active Substance: ISONIAZID
     Indication: Congenital tuberculosis
     Dosage: 10 MG/KG, DAILY
     Route: 048
  3. ISONIAZID [Suspect]
     Active Substance: ISONIAZID
     Dosage: 15 MG/KG, DAILY
     Route: 048
  4. RIFAMPIN [Suspect]
     Active Substance: RIFAMPIN
     Indication: Congenital tuberculosis
     Dosage: 15 MG/KG, DAILY
     Route: 048
  5. RIFAMPIN [Suspect]
     Active Substance: RIFAMPIN
     Dosage: 20 MG/KG, DAILY
     Route: 048
  6. PYRAZINAMIDE [Suspect]
     Active Substance: PYRAZINAMIDE
     Indication: Congenital tuberculosis
     Dosage: 35 MG/KG, DAILY
  7. AMIKACIN [Suspect]
     Active Substance: AMIKACIN
     Indication: Congenital tuberculosis
     Dosage: UNK
  8. PYRIDOXINE [Concomitant]
     Active Substance: PYRIDOXINE
     Indication: Supplementation therapy
     Dosage: UNK
  9. VANCOMYCIN [Concomitant]
     Active Substance: VANCOMYCIN
     Indication: Sepsis neonatal
     Dosage: 15 MG/KG, 3X/DAY
  10. PIPERACILLIN AND TAZOBACTAM [Concomitant]
     Active Substance: PIPERACILLIN SODIUM\TAZOBACTAM SODIUM
     Indication: Sepsis neonatal
     Dosage: 80 MG/KG, 4X/DAY
  11. MEROPENEM [Concomitant]
     Active Substance: MEROPENEM
     Dosage: UNK

REACTIONS (5)
  - Off label use [Unknown]
  - Off label use [Unknown]
  - Paradoxical drug reaction [Recovered/Resolved]
  - Treatment failure [Recovered/Resolved]
  - Drug effective for unapproved indication [Unknown]
